FAERS Safety Report 8447972-6 (Version None)
Quarter: 2012Q2

REPORT INFORMATION
  Report Type: 
  Country: None (occurrence: None)
  Receive Date: 20120619
  Receipt Date: 20120605
  Transmission Date: 20120825
  Serious: No
  Sender: FDA-Public Use
  Company Number: US-B.I. PHARMACEUTICALS,INC./RIDGEFIELD-2012-BP-13052BP

PATIENT
  Sex: Female

DRUGS (4)
  1. ABILIFY [Concomitant]
     Dates: start: 20060101
  2. COMBIVENT [Suspect]
     Dates: start: 20100101
  3. NOVALIN R [Concomitant]
  4. NOVALIN 70/30 [Concomitant]

REACTIONS (1)
  - HYPERGLYCAEMIA [None]
